FAERS Safety Report 10725616 (Version 1)
Quarter: 2015Q1

REPORT INFORMATION
  Report Type: Spontaneous
  Country: US (occurrence: US)
  Receive Date: 20150121
  Receipt Date: 20150121
  Transmission Date: 20150721
  Serious: Yes (Hospitalization)
  Sender: FDA-Public Use
  Company Number: US-JNJFOC-20150104730

PATIENT
  Sex: Female

DRUGS (7)
  1. BENADRYL [Suspect]
     Active Substance: DIPHENHYDRAMINE HYDROCHLORIDE
     Route: 065
  2. BENADRYL [Suspect]
     Active Substance: DIPHENHYDRAMINE HYDROCHLORIDE
     Indication: IDIOPATHIC ANGIOEDEMA
     Route: 065
     Dates: start: 201410
  3. EPIPEN [Concomitant]
     Active Substance: EPINEPHRINE
     Indication: SWELLING
     Route: 065
     Dates: start: 201410
  4. PREDNISONE. [Concomitant]
     Active Substance: PREDNISONE
     Indication: SWELLING
     Dosage: FOR 3 WEEKS
     Route: 065
     Dates: start: 201410
  5. ZYRTEC [Concomitant]
     Active Substance: CETIRIZINE HYDROCHLORIDE
     Indication: SWELLING
     Route: 065
     Dates: start: 201410
  6. HISTAMINE [Concomitant]
     Active Substance: HISTAMINE
     Indication: SWELLING
     Route: 065
     Dates: start: 201410
  7. HYDRALAZINE [Concomitant]
     Active Substance: HYDRALAZINE HYDROCHLORIDE
     Indication: SWELLING
     Route: 065
     Dates: start: 201410

REACTIONS (1)
  - Drug ineffective for unapproved indication [Unknown]
